FAERS Safety Report 24296294 (Version 7)
Quarter: 2025Q2

REPORT INFORMATION
  Report Type: Spontaneous
  Country: US (occurrence: US)
  Receive Date: 20240909
  Receipt Date: 20250417
  Transmission Date: 20250717
  Serious: No
  Sender: BIOGEN
  Company Number: US-BIOGEN-2024BI01281224

PATIENT
  Sex: Female

DRUGS (12)
  1. AVONEX [Suspect]
     Active Substance: INTERFERON BETA-1A
     Indication: Multiple sclerosis
     Route: 050
     Dates: start: 20160115, end: 20190829
  2. AVONEX [Suspect]
     Active Substance: INTERFERON BETA-1A
     Route: 050
     Dates: start: 2020
  3. AVONEX [Suspect]
     Active Substance: INTERFERON BETA-1A
  4. AVONEX [Suspect]
     Active Substance: INTERFERON BETA-1A
  5. DICLOFENAC [Concomitant]
     Active Substance: DICLOFENAC
     Route: 050
  6. LORAZEPAM [Concomitant]
     Active Substance: LORAZEPAM
     Route: 050
  7. NIFEDIPINE [Concomitant]
     Active Substance: NIFEDIPINE
     Route: 050
  8. PANTOPRAZOLE [Concomitant]
     Active Substance: PANTOPRAZOLE
     Route: 050
  9. ALBUTEROL [Concomitant]
     Active Substance: ALBUTEROL
     Route: 050
  10. METHYLPHENIDATE [Concomitant]
     Active Substance: METHYLPHENIDATE
     Route: 050
  11. PROPRANOLOL [Concomitant]
     Active Substance: PROPRANOLOL HYDROCHLORIDE
     Route: 050
  12. ZOLPIDEM [Concomitant]
     Active Substance: ZOLPIDEM TARTRATE
     Route: 050

REACTIONS (8)
  - Prescribed underdose [Recovered/Resolved]
  - Multiple sclerosis [Unknown]
  - Multiple sclerosis relapse [Unknown]
  - Regurgitation [Unknown]
  - Gait disturbance [Unknown]
  - Lung disorder [Unknown]
  - Weight decreased [Unknown]
  - Blood pressure decreased [Unknown]

NARRATIVE: CASE EVENT DATE: 20200101
